FAERS Safety Report 10022479 (Version 6)
Quarter: 2015Q2

REPORT INFORMATION
  Report Type: Spontaneous
  Country: US (occurrence: US)
  Receive Date: 20140319
  Receipt Date: 20150421
  Transmission Date: 20150821
  Serious: Yes (Hospitalization, Other)
  Sender: FDA-Public Use
  Company Number: US-009507513-1403USA005976

PATIENT
  Sex: Female
  Weight: 69.84 kg

DRUGS (8)
  1. FOSAMAX [Suspect]
     Active Substance: ALENDRONATE SODIUM
     Indication: OSTEOPOROSIS
     Dosage: 70 MG, QW
     Route: 048
     Dates: start: 1995, end: 2005
  2. ALENDRONATE SODIUM. [Suspect]
     Active Substance: ALENDRONATE SODIUM
     Indication: OSTEOPOROSIS
     Dosage: 35 MG, UNK
     Route: 048
  3. ACTONEL [Suspect]
     Active Substance: RISEDRONATE SODIUM
     Indication: OSTEOPOROSIS
  4. ALENDRONATE SODIUM. [Suspect]
     Active Substance: ALENDRONATE SODIUM
     Indication: OSTEOPOROSIS
     Dosage: 70 MG, QW
     Route: 048
     Dates: start: 2005, end: 2009
  5. CALCIUM D3 [Concomitant]
     Active Substance: CALCIUM\CHOLECALCIFEROL
     Indication: VITAMIN SUPPLEMENTATION
     Dosage: CALCIUM 600MG, D3 500IU
     Route: 048
     Dates: start: 2000
  6. ALENDRONATE SODIUM. [Suspect]
     Active Substance: ALENDRONATE SODIUM
     Indication: OSTEOPOROSIS
     Dosage: 35 MG, UNK
     Route: 048
  7. ACTONEL [Suspect]
     Active Substance: RISEDRONATE SODIUM
     Indication: OSTEOPOROSIS
     Dosage: 35 MG, QW
     Route: 048
     Dates: start: 2007, end: 20101006
  8. CENTRUM SILVER [Concomitant]
     Active Substance: VITAMINS
     Indication: VITAMIN SUPPLEMENTATION
     Dosage: UNK
     Route: 048
     Dates: start: 2000

REACTIONS (26)
  - Vitamin D deficiency [Recovered/Resolved]
  - Gastrooesophageal reflux disease [Unknown]
  - Femur fracture [Unknown]
  - Osteoarthritis [Unknown]
  - Urinary incontinence [Unknown]
  - Urinary tract infection [Unknown]
  - Fat embolism [Unknown]
  - Anxiety [Unknown]
  - Blood albumin decreased [Unknown]
  - Hyperlipidaemia [Unknown]
  - Intramedullary rod insertion [Unknown]
  - Tooth extraction [Unknown]
  - Insomnia [Unknown]
  - Cataract operation [Unknown]
  - Osteosclerosis [Unknown]
  - Hypotension [Unknown]
  - Femur fracture [Unknown]
  - Musculoskeletal discomfort [Unknown]
  - Stress fracture [Unknown]
  - Femur fracture [Unknown]
  - Anaemia [Unknown]
  - Osteonecrosis [Unknown]
  - Endometrial cancer [Unknown]
  - Hypercholesterolaemia [Unknown]
  - Subcutaneous haematoma [Unknown]
  - Uterine disorder [Unknown]

NARRATIVE: CASE EVENT DATE: 199910
